FAERS Safety Report 5176866-7 (Version None)
Quarter: 2006Q4

REPORT INFORMATION
  Report Type: 
  Country: None (occurrence: None)
  Receive Date: 20061212
  Receipt Date: 20061212
  Transmission Date: 20070319
  Serious: No
  Sender: FDA-Public Use
  Company Number: None

PATIENT
  Sex: Female
  Weight: 67 kg

DRUGS (2)
  1. VANCOMYCIN [Suspect]
     Indication: INFECTION
     Dosage: 1250 G OF 12HRS IV
     Route: 042
     Dates: start: 20061127, end: 20061206
  2. VANCOMYCIN [Suspect]
     Indication: INFECTION
     Dosage: 1 GM Q 12 IV
     Route: 042
     Dates: start: 20061122, end: 20061206

REACTIONS (2)
  - EOSINOPHIL COUNT INCREASED [None]
  - RASH [None]
